FAERS Safety Report 7824220-9 (Version None)
Quarter: 2011Q4

REPORT INFORMATION
  Report Type: 
  Country: None (occurrence: None)
  Receive Date: 20111014
  Receipt Date: 20111004
  Transmission Date: 20120403
  Serious: Yes (Hospitalization)
  Sender: FDA-Public Use
  Company Number: 1072681

PATIENT
  Age: 78 Year
  Sex: Female

DRUGS (5)
  1. CYCLOPHOSPHAMIDE [Suspect]
     Indication: CHEMOTHERAPY
     Dosage: 118 MG MILLIGRAM(S), INTRAVENOUS
     Route: 042
     Dates: start: 20070706
  2. (MABTHERA) [Suspect]
     Indication: CHEMOTHERAPY
     Dosage: 60 MG MILLIGRAM9S), INTRAVENOUS
     Route: 042
     Dates: start: 20070906, end: 20070906
  3. NEULASTA [Suspect]
     Indication: CHEMOTHERAPY
     Dosage: 6 MG MILLIGRAM(S), SUBCUTANEOUS
     Route: 058
     Dates: start: 20070907
  4. VINCRISTINE SULFATE [Suspect]
     Indication: CHEMOTHERAPY
     Dosage: 2 MG MILLIGRAM(S), INTRAVENOUS;
     Route: 042
     Dates: start: 20070906
  5. DOXORUBICIN HCL [Suspect]
     Indication: CHEMOTHERAPY
     Dosage: 78 MG MILLIGRAM(S), INTRAVENOUS
     Route: 042
     Dates: start: 20070906

REACTIONS (2)
  - FEBRILE NEUTROPENIA [None]
  - DRUG INEFFECTIVE [None]
